FAERS Safety Report 9817652 (Version 1)
Quarter: 2014Q1

REPORT INFORMATION
  Report Type: Report from Study
  Country: US (occurrence: US)
  Receive Date: 20140115
  Receipt Date: 20140115
  Transmission Date: 20141002
  Serious: Yes (Hospitalization, Other)
  Sender: FDA-Public Use
  Company Number: US-ROCHE-1314423

PATIENT
  Sex: Female

DRUGS (9)
  1. LUCENTIS [Suspect]
     Indication: CHOROIDAL NEOVASCULARISATION
     Dosage: BOTH EYES
     Route: 050
  2. LUCENTIS [Suspect]
     Indication: AGE-RELATED MACULAR DEGENERATION
     Dosage: RIGHT EYE
     Route: 050
  3. EYLEA [Concomitant]
     Dosage: OS
     Route: 050
  4. LUMIGAN [Concomitant]
     Dosage: OU
     Route: 065
  5. ZYMAR [Concomitant]
     Dosage: OU
     Route: 065
  6. TIMOLOL [Concomitant]
     Dosage: OU
     Route: 065
  7. OPTIVE [Concomitant]
     Dosage: OU
     Route: 065
  8. LIDOCAINE [Concomitant]
     Dosage: OPTHLAMIC GEL
     Route: 065
  9. BETADINE [Concomitant]
     Route: 065

REACTIONS (15)
  - Chest discomfort [Unknown]
  - Vitreous floaters [Unknown]
  - Cataract nuclear [Unknown]
  - Metamorphopsia [Unknown]
  - Visual impairment [Unknown]
  - Vision blurred [Unknown]
  - Retinal haemorrhage [Unknown]
  - Retinal detachment [Unknown]
  - Subretinal fibrosis [Unknown]
  - Visual acuity reduced [Unknown]
  - Retinal disorder [Unknown]
  - Dry eye [Unknown]
  - Macular scar [Unknown]
  - Vitreous detachment [Unknown]
  - Cataract [Unknown]
